FAERS Safety Report 10151975 (Version 2)
Quarter: 2014Q2

REPORT INFORMATION
  Report Type: Spontaneous
  Country: US (occurrence: US)
  Receive Date: 20140505
  Receipt Date: 20140505
  Transmission Date: 20141212
  Serious: Yes (Hospitalization)
  Sender: FDA-Public Use
  Company Number: US-SA-FABR-1002839

PATIENT
  Age: 28 Year
  Sex: Male

DRUGS (8)
  1. FABRAZYME [Suspect]
     Indication: FABRY^S DISEASE
     Dosage: 70 MG, Q2W
     Route: 042
     Dates: start: 201203
  2. PREDNISONE [Suspect]
     Indication: PREMEDICATION
     Route: 065
  3. PARACETAMOL [Concomitant]
     Indication: PREMEDICATION
     Dosage: 1000 MG, Q2W
     Route: 048
  4. DIPHENHYDRAMINE [Concomitant]
     Indication: PREMEDICATION
     Dosage: 50 MG, Q2W
     Route: 042
  5. ASA [Concomitant]
     Route: 048
  6. MIRTAZAPINE [Concomitant]
     Indication: SLEEP DISORDER
     Dosage: 15 MG QHS
     Route: 048
  7. HYDROCORTISONE [Concomitant]
     Indication: PREMEDICATION
     Dosage: 100 MG, Q2W
     Route: 042
  8. TRAZODONE [Concomitant]
     Indication: SLEEP DISORDER
     Dosage: 100 MG, QHS

REACTIONS (6)
  - Suicidal ideation [Not Recovered/Not Resolved]
  - Depression [Not Recovered/Not Resolved]
  - Anxiety [Not Recovered/Not Resolved]
  - Palpitations [Unknown]
  - Disorientation [Unknown]
  - Tachycardia [Unknown]
